FAERS Safety Report 15353496 (Version 1)
Quarter: 2018Q3

REPORT INFORMATION
  Report Type: Spontaneous
  Country: JP (occurrence: JP)
  Receive Date: 20180905
  Receipt Date: 20180905
  Transmission Date: 20181010
  Serious: Yes (Disabling)
  Sender: FDA-Public Use
  Company Number: JP-BAUSCH-2012VX005641

PATIENT
  Age: 83 Year
  Sex: Female

DRUGS (8)
  1. LUCENTIS [Suspect]
     Active Substance: RANIBIZUMAB
     Route: 031
     Dates: start: 20091209, end: 20091209
  2. CRAVIT [Concomitant]
     Active Substance: LEVOFLOXACIN
     Indication: PRODUCT USED FOR UNKNOWN INDICATION
     Route: 065
     Dates: start: 200912, end: 200912
  3. LUCENTIS [Suspect]
     Active Substance: RANIBIZUMAB
     Indication: RETINAL VASCULAR DISORDER
     Dosage: IN LEFT EYE
     Route: 047
     Dates: start: 20091202, end: 20091202
  4. VISUDYNE [Suspect]
     Active Substance: VERTEPORFIN
     Indication: RETINAL VASCULAR DISORDER
     Route: 042
     Dates: start: 20091209, end: 20091209
  5. LUCENTIS [Suspect]
     Active Substance: RANIBIZUMAB
     Route: 031
     Dates: start: 20091202, end: 20091202
  6. LUCENTIS [Suspect]
     Active Substance: RANIBIZUMAB
     Dosage: IN RIGHT EYE, INTRAVITREAL
     Route: 047
     Dates: start: 20091209, end: 20091209
  7. LUCENTIS [Suspect]
     Active Substance: RANIBIZUMAB
     Dosage: INTRAVITREAL
     Route: 065
     Dates: start: 20110909, end: 20110909
  8. VISUDYNE [Suspect]
     Active Substance: VERTEPORFIN
     Route: 042
     Dates: start: 20110909

REACTIONS (2)
  - Retinal pigment epithelial tear [Recovered/Resolved with Sequelae]
  - Inappropriate schedule of drug administration [Recovered/Resolved]

NARRATIVE: CASE EVENT DATE: 20091202
